FAERS Safety Report 24321637 (Version 1)
Quarter: 2024Q3

REPORT INFORMATION
  Report Type: Spontaneous
  Country: US (occurrence: None)
  Receive Date: 20240916
  Receipt Date: 20240916
  Transmission Date: 20241016
  Serious: No
  Sender: ASTRAZENECA
  Company Number: 2024A190796

PATIENT
  Sex: Female

DRUGS (1)
  1. BREZTRI [Suspect]
     Active Substance: BUDESONIDE\FORMOTEROL\GLYCOPYRROLATE
     Dosage: UG, PRN AS REQUIRED
     Route: 055
     Dates: start: 202305

REACTIONS (9)
  - Multiple allergies [Unknown]
  - Intentional device misuse [Unknown]
  - Product prescribing error [Unknown]
  - Device delivery system issue [Unknown]
  - Wrong technique in device usage process [Unknown]
  - Extra dose administered [Unknown]
  - Incorrect dose administered [Unknown]
  - Drug ineffective [Unknown]
  - Device use issue [Unknown]
